FAERS Safety Report 10185044 (Version 2)
Quarter: 2014Q2

REPORT INFORMATION
  Report Type: Spontaneous
  Country: DE (occurrence: DE)
  Receive Date: 20140521
  Receipt Date: 20140528
  Transmission Date: 20141212
  Serious: Yes (Hospitalization)
  Sender: FDA-Public Use
  Company Number: DE-009507513-1405DEU009572

PATIENT
  Age: 18 Year
  Sex: Female

DRUGS (2)
  1. NUVARING [Suspect]
     Indication: CONTRACEPTION
     Dosage: UNK
     Route: 067
     Dates: start: 2012
  2. NUVARING [Suspect]
     Dosage: INSERTED THE RING NEWLY, REMOVED AFTER 2 WEEKS OF APPLICATION
     Route: 067
     Dates: start: 20140501, end: 20140514

REACTIONS (3)
  - Pyelonephritis [Unknown]
  - Abnormal withdrawal bleeding [Unknown]
  - Incorrect drug administration duration [Unknown]
